FAERS Safety Report 16826940 (Version 1)
Quarter: 2019Q3

REPORT INFORMATION
  Report Type: Spontaneous
  Country: US (occurrence: US)
  Receive Date: 20190919
  Receipt Date: 20190919
  Transmission Date: 20191005
  Serious: Yes (Other)
  Sender: FDA-Public Use
  Company Number: US-SAOL THERAPEUTICS-2019SAO00371

PATIENT
  Age: 17 Year
  Sex: Female

DRUGS (1)
  1. LIORESAL [Suspect]
     Active Substance: BACLOFEN
     Dosage: 77 ?G, \DAY
     Route: 037

REACTIONS (9)
  - Fat necrosis [Recovered/Resolved]
  - Weight increased [Recovered/Resolved]
  - Back pain [Recovered/Resolved]
  - Irritability [Recovered/Resolved]
  - Device dislocation [Recovered/Resolved]
  - Pollakiuria [Recovered/Resolved]
  - Drug withdrawal syndrome [Recovered/Resolved]
  - Implant site extravasation [Recovered/Resolved]
  - Device damage [Recovered/Resolved]

NARRATIVE: CASE EVENT DATE: 201909
